FAERS Safety Report 20626826 (Version 1)
Quarter: 2022Q1

REPORT INFORMATION
  Report Type: Spontaneous
  Country: FI (occurrence: FI)
  Receive Date: 20220323
  Receipt Date: 20220323
  Transmission Date: 20220423
  Serious: Yes (Other)
  Sender: FDA-Public Use
  Company Number: None

PATIENT
  Age: 36 Year
  Sex: Female

DRUGS (3)
  1. STELARA [Suspect]
     Active Substance: USTEKINUMAB
     Indication: Crohn^s disease
     Route: 058
     Dates: start: 20210217, end: 20220211
  2. STELARA [Suspect]
     Active Substance: USTEKINUMAB
  3. LYNESTRENOL [Concomitant]
     Active Substance: LYNESTRENOL
     Indication: Endometriosis
     Dosage: 5,MG,DAILY
     Route: 048
     Dates: start: 20211004, end: 20211101

REACTIONS (1)
  - Optic neuritis [Not Recovered/Not Resolved]

NARRATIVE: CASE EVENT DATE: 20211011
